FAERS Safety Report 6955954-6 (Version None)
Quarter: 2010Q3

REPORT INFORMATION
  Report Type: 
  Country: None (occurrence: None)
  Receive Date: 20100830
  Receipt Date: 20100820
  Transmission Date: 20110219
  Serious: Yes (Hospitalization)
  Sender: FDA-Public Use
  Company Number: FR-MERCK-1008FRA00069

PATIENT
  Age: 31 Year
  Sex: Female

DRUGS (7)
  1. PEPCID [Suspect]
     Indication: GASTRITIS
     Route: 048
     Dates: start: 20090716, end: 20090727
  2. LAMOTRIGINE [Suspect]
     Indication: MIGRAINE
     Route: 048
     Dates: start: 20090717, end: 20090727
  3. KETOPROFEN [Concomitant]
     Indication: MIGRAINE
     Route: 048
     Dates: start: 20060101
  4. DOMPERIDONE [Concomitant]
     Indication: GASTRITIS
     Route: 048
     Dates: start: 20090716, end: 20090727
  5. ETHINYL ESTRADIOL AND GESTODENE [Concomitant]
     Indication: CONTRACEPTION
     Route: 048
  6. PANTOPRAZOLE SODIUM [Concomitant]
     Indication: GASTRITIS
     Route: 048
     Dates: start: 20081101
  7. ELETRIPTAN HYDROBROMIDE [Concomitant]
     Indication: MIGRAINE
     Route: 048
     Dates: start: 20090421

REACTIONS (2)
  - SKIN TEST [None]
  - STEVENS-JOHNSON SYNDROME [None]
